FAERS Safety Report 13206910 (Version 1)
Quarter: 2017Q1

REPORT INFORMATION
  Report Type: Spontaneous
  Country: US (occurrence: US)
  Receive Date: 20170208
  Receipt Date: 20170208
  Transmission Date: 20170428
  Serious: No
  Sender: FDA-Public Use
  Company Number: None

PATIENT
  Age: 47 Year
  Sex: Female

DRUGS (1)
  1. HUMIRA [Suspect]
     Active Substance: ADALIMUMAB
     Indication: PSORIATIC ARTHROPATHY
     Route: 058
     Dates: start: 20170113, end: 20170208

REACTIONS (6)
  - Eye pruritus [None]
  - Nausea [None]
  - Swelling [None]
  - Headache [None]
  - Dry mouth [None]
  - Injection site haematoma [None]
